FAERS Safety Report 20904207 (Version 1)
Quarter: 2022Q2

REPORT INFORMATION
  Report Type: Spontaneous
  Country: CN (occurrence: CN)
  Receive Date: 20220602
  Receipt Date: 20220602
  Transmission Date: 20220721
  Serious: Yes (Hospitalization, Other)
  Sender: FDA-Public Use
  Company Number: CN-LUPIN PHARMACEUTICALS INC.-2022-07894

PATIENT
  Age: 29 Year
  Sex: Female

DRUGS (15)
  1. HYDROXYCHLOROQUINE [Suspect]
     Active Substance: HYDROXYCHLOROQUINE
     Indication: Antiphospholipid syndrome
     Dosage: 100 MG, TID, THREE TIMES DAILY
     Route: 065
  2. AZITHROMYCIN [Suspect]
     Active Substance: AZITHROMYCIN
     Indication: Antibiotic prophylaxis
     Dosage: 0.5 GRAM, QD
     Route: 065
  3. ASPIRIN [Suspect]
     Active Substance: ASPIRIN
     Indication: Antiphospholipid syndrome
     Dosage: 25 MG, TID, THREE TIMES DAILY; ENTERIC-COATED TABLETS
     Route: 048
  4. CYCLOSPORINE [Suspect]
     Active Substance: CYCLOSPORINE
     Indication: Antiphospholipid syndrome
     Dosage: 50 MG, TID, THREE TIMES DAILY
     Route: 065
  5. PREDNISONE [Suspect]
     Active Substance: PREDNISONE
     Indication: Antiphospholipid syndrome
     Dosage: 7.5 MG, QD
     Route: 048
  6. PREDNISONE [Suspect]
     Active Substance: PREDNISONE
     Indication: Impetigo herpetiformis
     Dosage: 10 MG, BID
     Route: 048
  7. PREDNISONE [Suspect]
     Active Substance: PREDNISONE
     Dosage: 20 MG, BID
     Route: 048
  8. DYDROGESTERONE [Suspect]
     Active Substance: DYDROGESTERONE
     Indication: Vaginal haemorrhage
     Dosage: 10 MG, TID, THREE TIMES DAILY
     Route: 065
  9. CEFOPERAZONE [Suspect]
     Active Substance: CEFOPERAZONE
     Indication: Evidence based treatment
     Dosage: 2 GRAM, 2 G PER DOSE INJECTION; RECEIVED 3 DOSES
     Route: 065
  10. SULBACTAM [Suspect]
     Active Substance: SULBACTAM
     Indication: Evidence based treatment
     Dosage: 2 GRAM, 2 G PER DOSE INJECTION; RECEIVED THREE DOSES
     Route: 065
  11. PRIVIGEN [Suspect]
     Active Substance: HUMAN IMMUNOGLOBULIN G
     Indication: Impetigo herpetiformis
     Dosage: 20 GRAM, QD
     Route: 042
  12. ENOXAPARIN [Suspect]
     Active Substance: ENOXAPARIN
     Indication: Anticoagulant therapy
     Dosage: UNK, 4000 U
     Route: 058
  13. ACETAMINOPHEN [Suspect]
     Active Substance: ACETAMINOPHEN
     Indication: Antipyresis
     Dosage: UNK
     Route: 065
  14. METHYLPREDNISOLONE [Suspect]
     Active Substance: METHYLPREDNISOLONE
     Indication: Impetigo herpetiformis
     Dosage: 30 MG, BID
     Route: 042
  15. ALBUMIN HUMAN [Suspect]
     Active Substance: ALBUMIN HUMAN
     Indication: Hypoalbuminaemia
     Dosage: UNK
     Route: 042

REACTIONS (7)
  - Impetigo herpetiformis [Recovered/Resolved]
  - Exposure during pregnancy [Unknown]
  - Stillbirth [Recovered/Resolved]
  - Hypoalbuminaemia [Unknown]
  - Vaginal haemorrhage [Unknown]
  - Tachycardia [Unknown]
  - Sleep disorder [Unknown]
